FAERS Safety Report 12843509 (Version 1)
Quarter: 2016Q4

REPORT INFORMATION
  Report Type: Spontaneous
  Country: US (occurrence: US)
  Receive Date: 20161013
  Receipt Date: 20161013
  Transmission Date: 20170207
  Serious: Yes (Other)
  Sender: FDA-Public Use
  Company Number: None

PATIENT
  Age: 69 Year
  Sex: Female
  Weight: 108.41 kg

DRUGS (12)
  1. METFORMIN HCL ER 500 MG TABS AOTEX CORP. [Suspect]
     Active Substance: METFORMIN HYDROCHLORIDE
     Indication: TYPE 2 DIABETES MELLITUS
     Route: 048
     Dates: start: 20110804, end: 20150514
  2. AMARYL [Concomitant]
     Active Substance: GLIMEPIRIDE
  3. VORINOSTAT [Concomitant]
     Active Substance: VORINOSTAT
  4. INVOKANA [Concomitant]
     Active Substance: CANAGLIFLOZIN
  5. ATORVASTATIN [Concomitant]
     Active Substance: ATORVASTATIN
  6. SULFASALAZINE. [Concomitant]
     Active Substance: SULFASALAZINE
  7. HYDROXYCHLOROQUINE [Concomitant]
     Active Substance: HYDROXYCHLOROQUINE
  8. BENICAR [Concomitant]
     Active Substance: OLMESARTAN MEDOXOMIL
  9. ZORVOLEX [Concomitant]
     Active Substance: DICLOFENAC
  10. BYDUREON [Concomitant]
     Active Substance: EXENATIDE
  11. GLUCOPHAGE [Concomitant]
     Active Substance: METFORMIN HYDROCHLORIDE
  12. VITAMIN D [Concomitant]
     Active Substance: CHOLECALCIFEROL

REACTIONS (1)
  - Hypersensitivity [None]

NARRATIVE: CASE EVENT DATE: 20150514
